FAERS Safety Report 15483675 (Version 3)
Quarter: 2018Q4

REPORT INFORMATION
  Report Type: Report from Study
  Country: CA (occurrence: CA)
  Receive Date: 20181010
  Receipt Date: 20181109
  Transmission Date: 20190205
  Serious: Yes (Hospitalization)
  Sender: FDA-Public Use
  Company Number: CA-PFIZER INC-2018274889

PATIENT
  Age: 75 Year
  Sex: Female

DRUGS (10)
  1. METOPROLOL. [Concomitant]
     Active Substance: METOPROLOL
     Dosage: UNK
  2. PREDNISONE. [Suspect]
     Active Substance: PREDNISONE
     Dosage: 5 MG, QD
     Route: 065
     Dates: end: 201809
  3. MEZAVANT [Concomitant]
     Active Substance: MESALAMINE
     Dosage: 2.4 G (2 TABLETS), 1X/DAY
  4. EMTEC [Concomitant]
     Dosage: UNK
  5. PREDNISONE. [Suspect]
     Active Substance: PREDNISONE
     Dosage: UNK UNK, QD
     Route: 065
  6. MICRO-K [Concomitant]
     Active Substance: POTASSIUM CHLORIDE
     Dosage: UNK
  7. PANTOLOC [Suspect]
     Active Substance: PANTOPRAZOLE SODIUM
     Dosage: UNK
     Route: 048
  8. ENTYVIO [Suspect]
     Active Substance: VEDOLIZUMAB
     Indication: COLITIS ULCERATIVE
     Dosage: 300 MG, UNK
     Route: 042
     Dates: start: 20180503
  9. MEZAVANT [Concomitant]
     Active Substance: MESALAMINE
     Dosage: 2.4 G (2 TABLETS), 2X/DAY
  10. MAGNESIUM [Concomitant]
     Active Substance: MAGNESIUM
     Dosage: UNK

REACTIONS (4)
  - Weight decreased [Unknown]
  - Feeding disorder [Unknown]
  - Decreased appetite [Unknown]
  - Dysgeusia [Not Recovered/Not Resolved]

NARRATIVE: CASE EVENT DATE: 2018
